FAERS Safety Report 4697676-0 (Version None)
Quarter: 2005Q2

REPORT INFORMATION
  Report Type: 
  Country: None (occurrence: None)
  Receive Date: 20050622
  Receipt Date: 20050606
  Transmission Date: 20051028
  Serious: Yes (Hospitalization)
  Sender: FDA-Public Use
  Company Number: US_000848083

PATIENT
  Age: 9 Year
  Sex: Male
  Weight: 16 kg

DRUGS (3)
  1. HUMATROPE [Suspect]
     Indication: HYPOTHALAMO-PITUITARY DISORDERS
     Dosage: 0.3 MG/6 WEEK
     Dates: start: 19991108, end: 20050418
  2. LEVOXYL [Concomitant]
  3. CORTEF (HYDROCHLOCORTISONE ACETATE) [Concomitant]

REACTIONS (14)
  - ABDOMINAL PAIN [None]
  - CONSTIPATION [None]
  - CSF PRESSURE INCREASED [None]
  - DIARRHOEA [None]
  - GYNAECOMASTIA [None]
  - HALLUCINATION [None]
  - HEADACHE [None]
  - HEADACHE POSTOPERATIVE [None]
  - INTRACRANIAL PRESSURE INCREASED [None]
  - NAUSEA [None]
  - OPTIC DISCS BLURRED [None]
  - PAPILLOEDEMA [None]
  - THYMUS DISORDER [None]
  - VOMITING [None]
